FAERS Safety Report 10381836 (Version 2)
Quarter: 2014Q3

REPORT INFORMATION
  Report Type: Spontaneous
  Country: US (occurrence: US)
  Receive Date: 20140813
  Receipt Date: 20140926
  Transmission Date: 20150326
  Serious: Yes (Hospitalization)
  Sender: FDA-Public Use
  Company Number: US-BAYER-2014-120543

PATIENT
  Age: 25 Year
  Sex: Female
  Weight: 77.98 kg

DRUGS (3)
  1. ZANTAC [Concomitant]
     Active Substance: RANITIDINE HYDROCHLORIDE
  2. MIRENA [Suspect]
     Active Substance: LEVONORGESTREL
     Dosage: 20 MCG/24HR, CONT
     Route: 015
     Dates: start: 20120202, end: 20120922
  3. ALDOMET [Concomitant]
     Active Substance: METHYLDOPA

REACTIONS (6)
  - Uterine perforation [None]
  - Nausea [None]
  - Injury [None]
  - Device issue [None]
  - Abdominal pain lower [None]
  - Pain [None]

NARRATIVE: CASE EVENT DATE: 20120922
